FAERS Safety Report 6556073-3 (Version None)
Quarter: 2010Q1

REPORT INFORMATION
  Report Type: 
  Country: None (occurrence: None)
  Receive Date: 20100128
  Receipt Date: 20090325
  Transmission Date: 20100710
  Serious: No
  Sender: FDA-Public Use
  Company Number: US-TEVA-189308USA

PATIENT
  Sex: Female

DRUGS (2)
  1. COPAXONE [Suspect]
     Indication: MULTIPLE SCLEROSIS
     Route: 058
     Dates: start: 20090306, end: 20090308
  2. MODAFINIL [Concomitant]

REACTIONS (3)
  - DYSPHAGIA [None]
  - DYSURIA [None]
  - SWELLING [None]
